FAERS Safety Report 24540791 (Version 1)
Quarter: 2024Q4

REPORT INFORMATION
  Report Type: Spontaneous
  Country: ES (occurrence: ES)
  Receive Date: 20241023
  Receipt Date: 20241023
  Transmission Date: 20250114
  Serious: Yes (Death)
  Sender: ELI LILLY AND COMPANY
  Company Number: None

PATIENT
  Age: 14 Year
  Sex: Male
  Weight: 114 kg

DRUGS (2)
  1. ATOMOXETINE HYDROCHLORIDE [Suspect]
     Active Substance: ATOMOXETINE HYDROCHLORIDE
     Indication: Antisocial personality disorder
     Dosage: 80 MG/24H
     Route: 048
     Dates: start: 20240415
  2. KETAZOLAM [Suspect]
     Active Substance: KETAZOLAM
     Indication: Antisocial personality disorder
     Dosage: 15 MG/24H
     Route: 048
     Dates: start: 20201124

REACTIONS (2)
  - Completed suicide [Fatal]
  - Off label use [Unknown]

NARRATIVE: CASE EVENT DATE: 20240415
